FAERS Safety Report 6371705-0 (Version None)
Quarter: 2009Q3

REPORT INFORMATION
  Report Type: 
  Country: None (occurrence: None)
  Receive Date: 20090923
  Receipt Date: 20080314
  Transmission Date: 20100115
  Serious: Yes (Hospitalization)
  Sender: FDA-Public Use
  Company Number: US-ASTRAZENECA-2008UW01182

PATIENT
  Age: 12644 Day
  Sex: Female
  Weight: 103 kg

DRUGS (13)
  1. SEROQUEL [Suspect]
     Indication: ANXIETY
     Route: 048
     Dates: start: 20060801, end: 20070801
  2. SEROQUEL [Suspect]
     Indication: DEPRESSION
     Route: 048
     Dates: start: 20060801, end: 20070801
  3. SEROQUEL [Suspect]
     Indication: SCHIZOPHRENIA
     Route: 048
     Dates: start: 20060801, end: 20070801
  4. SEROQUEL [Suspect]
     Route: 048
     Dates: start: 20060831
  5. SEROQUEL [Suspect]
     Route: 048
     Dates: start: 20060831
  6. SEROQUEL [Suspect]
     Route: 048
     Dates: start: 20060831
  7. EFFEXOR XR [Concomitant]
     Dosage: 37.5 MG EVERY MORNING FOR ONE WEEK AND 75 MG EVERY MORNING FOR 3 WEEKS
     Dates: start: 20061026
  8. PREDNISONE [Concomitant]
     Indication: SARCOIDOSIS
     Dosage: STRENGTH - 10 MG, 20 MG
     Dates: start: 20060831
  9. METFORMIN HCL [Concomitant]
     Route: 048
     Dates: start: 20070912
  10. NORVASC [Concomitant]
     Route: 048
     Dates: start: 20070523
  11. LISINOPRIL AND HYDROCHLOROTHIAZIDE [Concomitant]
     Dosage: 20/12.5 MG
     Route: 048
     Dates: start: 20070523
  12. NOVOLOG MIX 70/30 [Concomitant]
     Dosage: 70/30 ADMINISTER 3 TIMES PER DAY
     Dates: start: 20070912
  13. ASPIRIN [Concomitant]
     Route: 048
     Dates: start: 20071017

REACTIONS (2)
  - DIABETES MELLITUS [None]
  - INSULIN-REQUIRING TYPE 2 DIABETES MELLITUS [None]
